FAERS Safety Report 7321776-X (Version None)
Quarter: 2011Q1

REPORT INFORMATION
  Report Type: 
  Country: None (occurrence: None)
  Receive Date: 20110215
  Receipt Date: 20110131
  Transmission Date: 20110831
  Serious: Yes (Hospitalization)
  Sender: FDA-Public Use
  Company Number: CIO11001883

PATIENT
  Age: 5 Week
  Sex: Female

DRUGS (2)
  1. PEPTO-BISMOL, VERSION/FLAVOR UNKNOWN (BISMUTH (CONTINUED) [Suspect]
     Indication: DIARRHOEA
     Dosage: 0.5 TSP, DAILY, ORAL
     Route: 048
  2. PEPTO-BISMOL, VERSION/FLAVOR UNKNOWN (BISMUTH (CONTINUED) [Suspect]
     Indication: FAECES DISCOLOURED
     Dosage: 0.5 TSP, DAILY, ORAL
     Route: 048

REACTIONS (3)
  - FAECES DISCOLOURED [None]
  - OCCULT BLOOD POSITIVE [None]
  - ANAL FISSURE [None]
